FAERS Safety Report 20090649 (Version 1)
Quarter: 2021Q4

REPORT INFORMATION
  Report Type: Report from Study
  Country: US (occurrence: US)
  Receive Date: 20211119
  Receipt Date: 20211119
  Transmission Date: 20220304
  Serious: No
  Sender: FDA-Public Use
  Company Number: US-LUNDBECK-DKLU3040367

PATIENT
  Age: 43 Year
  Sex: Male

DRUGS (2)
  1. VYEPTI [Suspect]
     Active Substance: EPTINEZUMAB-JJMR
     Indication: Migraine
     Route: 041
     Dates: start: 20211022
  2. TORADOL [Concomitant]
     Active Substance: KETOROLAC TROMETHAMINE
     Indication: Product used for unknown indication
     Route: 065

REACTIONS (2)
  - Hemiplegic migraine [Unknown]
  - Migraine [Unknown]

NARRATIVE: CASE EVENT DATE: 20211022
